FAERS Safety Report 5320500-X (Version None)
Quarter: 2007Q2

REPORT INFORMATION
  Report Type: 
  Country: None (occurrence: None)
  Receive Date: 20070509
  Receipt Date: 20070501
  Transmission Date: 20071010
  Serious: Yes (Death)
  Sender: FDA-Public Use
  Company Number: US-JNJFOC-20060902486

PATIENT
  Age: 43 Year
  Sex: Female

DRUGS (3)
  1. ASPIRIN [Suspect]
     Indication: SUICIDE ATTEMPT
     Route: 048
  2. BUSPIRONE [Suspect]
     Indication: SUICIDE ATTEMPT
     Route: 048
  3. EFFEXOR XR [Suspect]
     Indication: SUICIDE ATTEMPT
     Route: 048

REACTIONS (8)
  - ACIDOSIS [None]
  - CARDIAC ARREST [None]
  - COMPLETED SUICIDE [None]
  - HAEMODIALYSIS [None]
  - HEART RATE INCREASED [None]
  - LOSS OF CONSCIOUSNESS [None]
  - MULTIPLE DRUG OVERDOSE INTENTIONAL [None]
  - VOMITING [None]
